FAERS Safety Report 6137979-6 (Version None)
Quarter: 2009Q1

REPORT INFORMATION
  Report Type: 
  Country: None (occurrence: None)
  Receive Date: 20090327
  Receipt Date: 20090308
  Transmission Date: 20090719
  Serious: Yes (Other)
  Sender: FDA-Public Use
  Company Number: 2007S1002485

PATIENT
  Age: 68 Year
  Sex: Male
  Weight: 70.3075 kg

DRUGS (6)
  1. PHOSPHOSODA FLAVOR NOT SPECIFIED [Suspect]
     Indication: COLONOSCOPY
     Dosage: 90 ML; TOTAL;
     Dates: start: 20060814, end: 20060814
  2. ATENOLOL [Concomitant]
  3. FLUNISOLIDE [Concomitant]
  4. NIFEDIPINE [Concomitant]
  5. OMEPRAZOLE [Concomitant]
  6. ASPIRIN [Concomitant]

REACTIONS (9)
  - DRUG TOXICITY [None]
  - EMOTIONAL DISTRESS [None]
  - ILL-DEFINED DISORDER [None]
  - INJURY [None]
  - MENTAL DISORDER [None]
  - PAIN [None]
  - RENAL FAILURE ACUTE [None]
  - RENAL FAILURE CHRONIC [None]
  - RENAL TUBULAR NECROSIS [None]
